FAERS Safety Report 7148188-6 (Version None)
Quarter: 2010Q4

REPORT INFORMATION
  Report Type: 
  Country: None (occurrence: None)
  Receive Date: 20101209
  Receipt Date: 20101207
  Transmission Date: 20110411
  Serious: Yes (Death, Hospitalization)
  Sender: FDA-Public Use
  Company Number: US-SHIRE-ALL1-2010-06372

PATIENT
  Sex: Male
  Weight: 71.202 kg

DRUGS (3)
  1. FOSRENOL [Suspect]
     Indication: HYPERPHOSPHATAEMIA
     Dosage: 500 MG, OTHER(WITH EACH MEAL DAILY)
     Route: 048
     Dates: start: 20101001
  2. JANUVIA [Concomitant]
     Indication: TYPE 2 DIABETES MELLITUS
     Dosage: UNK MG, UNKNOWN
     Route: 048
  3. GLIMEPIRIDE [Concomitant]
     Indication: TYPE 2 DIABETES MELLITUS
     Dosage: UNK MG, UNKNOWN
     Route: 048

REACTIONS (5)
  - BLOOD PRESSURE DECREASED [None]
  - CARDIAC ARREST [None]
  - DYSPHAGIA [None]
  - HEART RATE INCREASED [None]
  - MYOCARDIAL INFARCTION [None]
